FAERS Safety Report 8486853-9 (Version None)
Quarter: 2012Q3

REPORT INFORMATION
  Report Type: 
  Country: None (occurrence: None)
  Receive Date: 20120704
  Receipt Date: 20120628
  Transmission Date: 20120928
  Serious: Yes (Other)
  Sender: FDA-Public Use
  Company Number: US-AMGEN-USASP2012040513

PATIENT
  Age: 75 Year
  Sex: Male

DRUGS (3)
  1. HUMIRA [Concomitant]
     Dosage: UNK
  2. ALENDRONATE SODIUM [Concomitant]
     Dosage: UNK
  3. ENBREL [Suspect]
     Indication: PSORIASIS
     Dosage: 50 MG, QWK
     Dates: start: 20071101

REACTIONS (8)
  - FALL [None]
  - PSORIASIS [None]
  - DRUG INEFFECTIVE [None]
  - INJECTION SITE URTICARIA [None]
  - URTICARIA [None]
  - PRURITUS [None]
  - PELVIC FRACTURE [None]
  - INJECTION SITE PRURITUS [None]
